FAERS Safety Report 8802710 (Version 3)
Quarter: 2013Q3

REPORT INFORMATION
  Report Type: Spontaneous
  Country: US (occurrence: US)
  Receive Date: 20120921
  Receipt Date: 20130820
  Transmission Date: 20140515
  Serious: Yes (Other)
  Sender: FDA-Public Use
  Company Number: US-PFIZER INC-2012232638

PATIENT
  Age: 58 Year
  Sex: Female

DRUGS (17)
  1. LYRICA [Suspect]
     Indication: CONVULSION
     Dosage: 75 MG, 2X/DAY
  2. LYRICA [Suspect]
     Indication: NEUROPATHY PERIPHERAL
     Dosage: 75 MG, QD
     Route: 048
     Dates: start: 200906
  3. LYRICA [Suspect]
     Indication: CONVULSION
  4. DILANTIN [Suspect]
     Indication: CONVULSION
     Dosage: 500 MG, DAILY (FIVE CAPSULE DAILY TWO IN MORNING AND THREE IN EVENING)
  5. DILANTIN [Suspect]
     Indication: CONVULSION
     Dosage: 200 MG, 2X/DAY (TWO IN MORNING AND TWO IN EVENING)
  6. DILANTIN [Suspect]
     Dosage: UNK
  7. DILANTIN [Suspect]
     Dosage: 100 MG, 3 PO QAM 2 PO QHS
     Route: 048
     Dates: start: 200707
  8. LAMICTAL [Suspect]
     Indication: CONVULSION
     Dosage: 100 MG, 2X/DAY
     Route: 048
     Dates: start: 200707
  9. PHENOBARBITAL [Suspect]
     Indication: CONVULSION
     Dosage: UNK, 1X/DAY (DAILY)
  10. PHENOBARBITAL [Suspect]
     Indication: CONVULSION
  11. LEVOTHYROXINE SODIUM [Concomitant]
     Dosage: 100 UG, DAILY
  12. LISINOPRIL [Concomitant]
     Dosage: ONE TABLET AT AN UNKNOWN DOSE DAILY
  13. PRAVASTATIN [Concomitant]
     Dosage: 200 MG, DAILY (AT BEDTIME)
  14. AMLODIPINE [Concomitant]
     Dosage: UNK, DAILY (ONE TABLET DAILY AT BEDTIME)
  15. THYROXINE SODIUM [Concomitant]
     Dosage: UNK
  16. METFORMIN HYDROCHLORIDE [Concomitant]
     Dosage: UNK
     Dates: start: 201112
  17. METFORMIN [Concomitant]
     Dosage: UNK

REACTIONS (5)
  - Drug ineffective [Recovered/Resolved]
  - Convulsion [Recovered/Resolved]
  - Fatigue [Recovered/Resolved]
  - Speech disorder [Recovered/Resolved]
  - Treatment noncompliance [Recovered/Resolved]
